FAERS Safety Report 9843902 (Version 1)
Quarter: 2013Q4

REPORT INFORMATION
  Report Type: Spontaneous
  Country: US (occurrence: None)
  Receive Date: 20131223
  Receipt Date: 20131223
  Transmission Date: 20140711
  Serious: No
  Sender: FDA-Public Use
  Company Number: 1000048965

PATIENT
  Sex: Female

DRUGS (2)
  1. LINZESS [Suspect]
     Indication: CONSTIPATION
     Route: 048
     Dates: start: 201307, end: 201309
  2. STOOL SOFTNER (DOCUSATE SODIUM) (DOCUSATE SODIUM) [Concomitant]

REACTIONS (2)
  - Flatulence [None]
  - Faecal incontinence [None]
